FAERS Safety Report 12559560 (Version 1)
Quarter: 2016Q3

REPORT INFORMATION
  Report Type: Spontaneous
  Country: DE (occurrence: DE)
  Receive Date: 20160715
  Receipt Date: 20160715
  Transmission Date: 20161109
  Serious: Yes (Other)
  Sender: FDA-Public Use
  Company Number: DE-ROCHE-1794791

PATIENT
  Age: 89 Year

DRUGS (2)
  1. VEMURAFENIB [Suspect]
     Active Substance: VEMURAFENIB
     Indication: HAIRY CELL LEUKAEMIA
     Route: 065
  2. VEMURAFENIB [Suspect]
     Active Substance: VEMURAFENIB
     Route: 065

REACTIONS (2)
  - Acute kidney injury [Unknown]
  - Dehydration [Unknown]
